FAERS Safety Report 9803229 (Version 3)
Quarter: 2014Q1

REPORT INFORMATION
  Report Type: Spontaneous
  Country: US (occurrence: None)
  Receive Date: 20140102
  Receipt Date: 20140204
  Transmission Date: 20141002
  Serious: Yes (Hospitalization, Other)
  Sender: FDA-Public Use
  Company Number: AUR-APL-2013-10914

PATIENT
  Age: 64 Year
  Sex: Male

DRUGS (13)
  1. CLOPIDOGREL (CLOPIDOGREL) [Suspect]
     Indication: PRODUCT USED FOR UNKNOWN INDICATION
  2. ISONIAZID (ISONIAZID) [Suspect]
     Indication: PRODUCT USED FOR UNKNOWN INDICATION
  3. RITONAVIR (RITONAVIR) [Suspect]
     Indication: PRODUCT USED FOR UNKNOWN INDICATION
  4. DARUNAVIR (DARUNAVIR) [Concomitant]
  5. EMTRICITABINE-TENOFOVIR (EMTRICITABINE W/TENOFOVIR) [Concomitant]
  6. PYRIDOXINE (PYRIDOXINE) [Concomitant]
  7. ASPIRIN (ACETYLSALICYLIC ACID) [Concomitant]
  8. CARVEDILOL (CARVEDILOL) [Concomitant]
  9. ROSUVASTATIN (ROSUVASTATIN) [Concomitant]
  10. VALSARTAN (VALSARTAN) [Concomitant]
  11. SERTRALINE (SERTRALINE) [Concomitant]
  12. TAMSULOSIN (TAMSULOSIN) [Concomitant]
  13. ESOMEPRAZOLE (ESOMEPRAZOLE) [Concomitant]

REACTIONS (6)
  - Drug interaction [None]
  - No therapeutic response [None]
  - Pneumonia [None]
  - Acute coronary syndrome [None]
  - Chronic obstructive pulmonary disease [None]
  - Acute myocardial infarction [None]
